FAERS Safety Report 8835061 (Version 1)
Quarter: 2012Q4

REPORT INFORMATION
  Report Type: Spontaneous
  Country: US (occurrence: None)
  Receive Date: 20121009
  Receipt Date: 20121009
  Transmission Date: 20130627
  Serious: Yes (Other)
  Sender: FDA-Public Use
  Company Number: 2012090133

PATIENT
  Age: 86 Year
  Sex: Male

DRUGS (1)
  1. MUSE [Suspect]
     Indication: ERECTILE DYSFUNCTION
     Route: 066
     Dates: start: 2007

REACTIONS (2)
  - Insomnia [None]
  - Type 2 diabetes mellitus [None]
